FAERS Safety Report 8009811-7 (Version None)
Quarter: 2011Q4

REPORT INFORMATION
  Report Type: 
  Country: None (occurrence: None)
  Receive Date: 20111228
  Receipt Date: 20111221
  Transmission Date: 20120403
  Serious: No
  Sender: FDA-Public Use
  Company Number: PR-BAYER-2011-123345

PATIENT
  Age: 71 Year
  Sex: Male
  Weight: 77.551 kg

DRUGS (4)
  1. ULTRAVIST 150 [Suspect]
     Indication: COMPUTERISED TOMOGRAM
     Dosage: UNK
     Route: 042
     Dates: start: 20111221, end: 20111221
  2. COUMADIN [Concomitant]
     Dosage: 3 MG, UNK
  3. ENALAPRIL MALEATE [Concomitant]
     Dosage: 10 MG, UNK
  4. SIMVASTATIN [Concomitant]
     Dosage: 40 MG, UNK

REACTIONS (1)
  - PRURITUS [None]
